FAERS Safety Report 5304851-0 (Version None)
Quarter: 2007Q2

REPORT INFORMATION
  Report Type: 
  Country: None (occurrence: None)
  Receive Date: 20070423
  Receipt Date: 20070312
  Transmission Date: 20071010
  Serious: Yes (Other)
  Sender: FDA-Public Use
  Company Number: US-SANOFI-SYNTHELABO-A03200702400

PATIENT
  Sex: Female

DRUGS (1)
  1. AMBIEN [Suspect]
     Indication: INSOMNIA
     Dosage: 10 TO 20 MG PRN
     Route: 048
     Dates: start: 20030417, end: 20030601

REACTIONS (7)
  - AMNESIA [None]
  - CONTUSION [None]
  - DISTURBANCE IN ATTENTION [None]
  - DREAMY STATE [None]
  - IMPAIRED DRIVING ABILITY [None]
  - ROAD TRAFFIC ACCIDENT [None]
  - THERAPEUTIC RESPONSE INCREASED [None]
